FAERS Safety Report 12403608 (Version 3)
Quarter: 2016Q2

REPORT INFORMATION
  Report Type: Spontaneous
  Country: US (occurrence: US)
  Receive Date: 20160525
  Receipt Date: 20160630
  Transmission Date: 20160815
  Serious: Yes (Hospitalization, Other)
  Sender: FDA-Public Use
  Company Number: US-DRREDDYS-USA/USA/16/0080025

PATIENT
  Age: 37 Year
  Sex: Male

DRUGS (5)
  1. IBUPROFEN. [Suspect]
     Active Substance: IBUPROFEN
     Indication: PRODUCT USED FOR UNKNOWN INDICATION
     Dosage: 30 PILLS (400 MG) WITH A TOTAL DOSE OF 12 G
     Route: 065
  2. OLANZAPINE. [Concomitant]
     Active Substance: OLANZAPINE
     Indication: MENTAL DISORDER
     Route: 065
  3. AMLODIPINE [Concomitant]
     Active Substance: AMLODIPINE BESYLATE
     Indication: HYPERTENSION
     Route: 065
  4. HALOPERIDOL. [Concomitant]
     Active Substance: HALOPERIDOL
     Indication: MENTAL DISORDER
     Route: 065
  5. LISINOPRIL. [Concomitant]
     Active Substance: LISINOPRIL
     Indication: HYPERTENSION
     Route: 065

REACTIONS (13)
  - Acute kidney injury [Unknown]
  - Cerebral infarction [Unknown]
  - Acute myocardial infarction [Recovering/Resolving]
  - Intentional overdose [Unknown]
  - Cerebrovascular accident [Unknown]
  - Ocular icterus [Unknown]
  - Suicide attempt [Unknown]
  - Vitiligo [Unknown]
  - Haematuria [Unknown]
  - Conjunctivitis [Unknown]
  - Conjunctival pallor [Unknown]
  - Muscular weakness [Unknown]
  - Thrombotic thrombocytopenic purpura [Recovering/Resolving]
